FAERS Safety Report 11167205 (Version 2)
Quarter: 2015Q2

REPORT INFORMATION
  Report Type: Spontaneous
  Country: JP (occurrence: JP)
  Receive Date: 20150605
  Receipt Date: 20150619
  Transmission Date: 20150821
  Serious: Yes (Other)
  Sender: FDA-Public Use
  Company Number: JP-009507513-1504JPN017348

PATIENT
  Age: 38 Year
  Sex: Male
  Weight: 54 kg

DRUGS (2)
  1. TEMODAL [Suspect]
     Active Substance: TEMOZOLOMIDE
     Indication: BRAIN NEOPLASM MALIGNANT
     Dosage: 120 MG, QD
     Route: 048
     Dates: start: 20150410, end: 20150413
  2. SULFAMETHOXAZOLE AND TRIMETHOPRIM [Suspect]
     Active Substance: SULFAMETHOXAZOLE\TRIMETHOPRIM
     Indication: INFECTION PROPHYLAXIS
     Dosage: 1 TABLET DAILY, DIVIDED DOSE FREQUENCY UNKNOWN
     Route: 048
     Dates: start: 20150410, end: 20150413

REACTIONS (2)
  - Liver disorder [Recovered/Resolved]
  - Decreased appetite [Recovered/Resolved]

NARRATIVE: CASE EVENT DATE: 20150411
